FAERS Safety Report 14299423 (Version 11)
Quarter: 2021Q2

REPORT INFORMATION
  Report Type: Other
  Country: CA (occurrence: CA)
  Receive Date: 20171219
  Receipt Date: 20210414
  Transmission Date: 20210716
  Serious: Yes (Hospitalization, Other)
  Sender: FDA-Public Use
  Company Number: CA-ROCHE-1659599

PATIENT
  Age: 51 Year
  Sex: Male

DRUGS (41)
  1. RITUXAN [Suspect]
     Active Substance: RITUXIMAB
     Indication: RHEUMATOID ARTHRITIS
     Dosage: HE RECEIVED RITUXIMAB INFUSION ON 31/OCT/2016?PREVIOUS RITUXIMAB INFUSION: 26/FEB/2020.
     Route: 041
     Dates: start: 20151022
  2. ACETAMINOPHEN. [Concomitant]
     Active Substance: ACETAMINOPHEN
     Route: 048
     Dates: start: 20161031
  3. PLAQUENIL [Concomitant]
     Active Substance: HYDROXYCHLOROQUINE SULFATE
  4. ALMAGEL (CANADA) [Concomitant]
  5. COVERSYL [Concomitant]
     Active Substance: PERINDOPRIL
  6. DOMPERIDONE [Concomitant]
     Active Substance: DOMPERIDONE
  7. PANTOPRAZOLE [Concomitant]
     Active Substance: PANTOPRAZOLE
  8. SPIRONOLACTONE. [Concomitant]
     Active Substance: SPIRONOLACTONE
  9. METHOTREXATE. [Concomitant]
     Active Substance: METHOTREXATE
  10. FOLIC ACID. [Concomitant]
     Active Substance: FOLIC ACID
  11. SSZ [Concomitant]
     Active Substance: SULFASALAZINE
  12. RELAXA (CANADA) [Concomitant]
  13. TERAZOSIN [Concomitant]
     Active Substance: TERAZOSIN HYDROCHLORIDE
  14. XARELTO [Concomitant]
     Active Substance: RIVAROXABAN
  15. HYLO [Concomitant]
     Dosage: IN EACH EYE
  16. SPIRONOLACTONE. [Concomitant]
     Active Substance: SPIRONOLACTONE
  17. ACETAMINOPHEN. [Concomitant]
     Active Substance: ACETAMINOPHEN
     Indication: PREMEDICATION
     Route: 048
     Dates: start: 20151022, end: 20161031
  18. DIPHENHYDRAMINE. [Concomitant]
     Active Substance: DIPHENHYDRAMINE
     Indication: PREMEDICATION
     Route: 048
     Dates: start: 20151022
  19. XARELTO [Concomitant]
     Active Substance: RIVAROXABAN
  20. AMLODIPINE [Concomitant]
     Active Substance: AMLODIPINE BESYLATE
  21. ELIQUIS [Concomitant]
     Active Substance: APIXABAN
  22. LORAZEPAM. [Concomitant]
     Active Substance: LORAZEPAM
  23. MYCOPHENOLATE MOFETIL. [Concomitant]
     Active Substance: MYCOPHENOLATE MOFETIL
     Route: 048
  24. SALAGEN [Concomitant]
     Active Substance: PILOCARPINE HYDROCHLORIDE
  25. BISOPROLOL [Concomitant]
     Active Substance: BISOPROLOL
  26. FUROSEMIDE. [Concomitant]
     Active Substance: FUROSEMIDE
  27. HYDROMORPH CONTIN [Concomitant]
     Active Substance: HYDROMORPHONE
  28. HYDROMORPHONE [Concomitant]
     Active Substance: HYDROMORPHONE
  29. PERINDOPRIL [Concomitant]
     Active Substance: PERINDOPRIL
  30. OXYCODONE [Concomitant]
     Active Substance: OXYCODONE
  31. CALCIUM [Concomitant]
     Active Substance: CALCIUM
  32. ACETAMINOPHEN. [Concomitant]
     Active Substance: ACETAMINOPHEN
     Route: 048
  33. SODIUM BICARBONATE. [Concomitant]
     Active Substance: SODIUM BICARBONATE
  34. SULFATRIM [Concomitant]
     Active Substance: SULFAMETHOXAZOLE\TRIMETHOPRIM
     Dosage: 800?150 MG MILLIGRAM
  35. N?ACETYLCYSTEINE [Concomitant]
     Active Substance: ACETYLCYSTEINE
     Dosage: IN EACH EYE
  36. METHYLPREDNISOLONE. [Concomitant]
     Active Substance: METHYLPREDNISOLONE
     Indication: PREMEDICATION
     Route: 042
     Dates: start: 20151022
  37. CYMBALTA [Concomitant]
     Active Substance: DULOXETINE HYDROCHLORIDE
  38. SULFASALAZINE. [Concomitant]
     Active Substance: SULFASALAZINE
  39. PREDNISONE. [Concomitant]
     Active Substance: PREDNISONE
  40. ALENDRONATE [Concomitant]
     Active Substance: ALENDRONATE SODIUM
  41. COMPLEX B [Concomitant]
     Active Substance: CALCIUM PANTOTHENATE\CYANOCOBALAMIN\NIACINAMIDE\PYRIDOXINE HYDROCHLORIDE\RIBOFLAVIN\THIAMINE MONONITRATE

REACTIONS (26)
  - Renal impairment [Unknown]
  - Diarrhoea [Recovered/Resolved]
  - Pneumonia [Unknown]
  - Renal disorder [Unknown]
  - Rheumatoid arthritis [Recovered/Resolved]
  - Blood pressure systolic abnormal [Unknown]
  - Dysphonia [Recovered/Resolved]
  - Necrotising fasciitis [Recovered/Resolved]
  - Oropharyngeal pain [Unknown]
  - Pain in extremity [Not Recovered/Not Resolved]
  - Gastroenteritis [Unknown]
  - Musculoskeletal stiffness [Unknown]
  - Headache [Unknown]
  - Mouth ulceration [Recovering/Resolving]
  - Oral herpes [Not Recovered/Not Resolved]
  - Blood pressure increased [Unknown]
  - Heart rate decreased [Unknown]
  - Oropharyngeal pain [Recovered/Resolved]
  - Blood pressure diastolic abnormal [Unknown]
  - Splinter [Unknown]
  - Infusion related reaction [Recovered/Resolved]
  - Blood pressure fluctuation [Unknown]
  - Pericarditis [Unknown]
  - Blood uric acid increased [Not Recovered/Not Resolved]
  - Back pain [Unknown]
  - Nausea [Recovered/Resolved]

NARRATIVE: CASE EVENT DATE: 20151109
